FAERS Safety Report 4518633-0 (Version None)
Quarter: 2004Q4

REPORT INFORMATION
  Report Type: 
  Country: None (occurrence: None)
  Receive Date: 20041104
  Receipt Date: 20040105
  Transmission Date: 20050328
  Serious: Yes (Hospitalization)
  Sender: FDA-Public Use
  Company Number: USA040155695

PATIENT
  Sex: Female

DRUGS (1)
  1. VANCOMYCIN [Suspect]
     Indication: BACTERAEMIA
     Dosage: 1000 MG/2 DAY
     Dates: start: 20031210, end: 20031218

REACTIONS (1)
  - ANAPHYLACTIC REACTION [None]
